FAERS Safety Report 16805669 (Version 1)
Quarter: 2019Q3

REPORT INFORMATION
  Report Type: Spontaneous
  Country: MX (occurrence: MX)
  Receive Date: 20190913
  Receipt Date: 20190913
  Transmission Date: 20191005
  Serious: Yes (Other)
  Sender: FDA-Public Use
  Company Number: MX-009507513-1909MEX004531

PATIENT
  Age: 67 Year
  Sex: Female

DRUGS (2)
  1. KEYTRUDA [Suspect]
     Active Substance: PEMBROLIZUMAB
     Indication: BLADDER CANCER
     Dosage: 200 MILLIGRAM, EVERY 21 DAYS
     Route: 042
     Dates: start: 201706
  2. KEYTRUDA [Suspect]
     Active Substance: PEMBROLIZUMAB
     Indication: METASTASES TO LUNG
     Dosage: 200 MILLIGRAM EVERY 3 MONTHS
     Route: 042

REACTIONS (5)
  - Bladder cancer recurrent [Unknown]
  - Inappropriate schedule of product administration [Unknown]
  - Malignant neoplasm progression [Unknown]
  - Dermatitis [Recovered/Resolved]
  - Cystitis [Not Recovered/Not Resolved]

NARRATIVE: CASE EVENT DATE: 2017
